FAERS Safety Report 20016776 (Version 1)
Quarter: 2021Q4

REPORT INFORMATION
  Report Type: Spontaneous
  Country: US (occurrence: None)
  Receive Date: 20211104
  Receipt Date: 20211104
  Transmission Date: 20220303
  Serious: Yes (Other)
  Sender: FDA-Public Use
  Company Number: None

PATIENT
  Age: 81 Year

DRUGS (13)
  1. HIZENTRA [Suspect]
     Active Substance: HUMAN IMMUNOGLOBULIN G
     Indication: Immunodeficiency common variable
     Dosage: OTHER FREQUENCY : WEEKLY;?
     Route: 058
     Dates: start: 20190718
  2. Advair HFA 115-21 mcg inhaled PRN [Concomitant]
  3. Atorvastatin 20mg PO daily [Concomitant]
  4. Benazepril 10mg PO daily [Concomitant]
  5. Cyanocobalamin 1000mcg IM UD [Concomitant]
  6. Diclofenac 75mg PO BID [Concomitant]
  7. Fluticasone 50mcg inhaled daily [Concomitant]
  8. Levothyroxine 112mcg PO daily [Concomitant]
  9. Lyrica 100mg PO BID [Concomitant]
  10. Montelukast 10mg PO daily [Concomitant]
  11. Proair HFA 108mcg inhaled every 406 hours PRN [Concomitant]
  12. Rabeprazole 20mg PO daily [Concomitant]
  13. Venlafaxine 75gm PO BID [Concomitant]

REACTIONS (2)
  - Infusion site pruritus [None]
  - Infusion site pain [None]

NARRATIVE: CASE EVENT DATE: 20211028
